FAERS Safety Report 15267985 (Version 1)
Quarter: 2018Q3

REPORT INFORMATION
  Report Type: Spontaneous
  Country: US (occurrence: US)
  Receive Date: 20180725
  Receipt Date: 20180725
  Transmission Date: 20181010
  Serious: No
  Sender: FDA-Public Use
  Company Number: None

PATIENT
  Age: 45 Year
  Sex: Female
  Weight: 72 kg

DRUGS (1)
  1. VALASARTAN 40MG [Suspect]
     Active Substance: VALSARTAN
     Indication: HYPERTENSION
     Dosage: ?          QUANTITY:30 TABLET(S);?
     Route: 048
     Dates: start: 20151015, end: 20160801

REACTIONS (7)
  - Hypotension [None]
  - Nausea [None]
  - Heart rate increased [None]
  - Tachycardia [None]
  - Paraesthesia [None]
  - Dizziness [None]
  - Drug hypersensitivity [None]

NARRATIVE: CASE EVENT DATE: 20151030
